FAERS Safety Report 8711057 (Version 2)
Quarter: 2013Q4

REPORT INFORMATION
  Report Type: Report from Study
  Country: US (occurrence: US)
  Receive Date: 20120807
  Receipt Date: 20131101
  Transmission Date: 20140711
  Serious: No
  Sender: FDA-Public Use
  Company Number: US-009507513-1207USA007067

PATIENT
  Age: 27 Year
  Sex: Female
  Weight: 43.54 kg

DRUGS (4)
  1. VICTRELIS [Suspect]
     Dosage: 4 DF, TID,EVERY 7-9 HOURS
     Route: 048
  2. PEGASYS [Suspect]
  3. REBETOL [Suspect]
     Dosage: 400 MG, UNK
  4. PROCRIT [Concomitant]
     Dosage: 300 UNK, UNK

REACTIONS (1)
  - Anaemia [Unknown]
